FAERS Safety Report 8477498-5 (Version None)
Quarter: 2012Q2

REPORT INFORMATION
  Report Type: 
  Country: None (occurrence: None)
  Receive Date: 20120629
  Receipt Date: 20120619
  Transmission Date: 20120825
  Serious: Yes (Other)
  Sender: FDA-Public Use
  Company Number: US-MILLENNIUM PHARMACEUTICALS, INC.-2012-03306

PATIENT
  Sex: Female

DRUGS (6)
  1. DEXAMETHASONE [Suspect]
     Indication: MULTIPLE MYELOMA
  2. REVLIMID [Suspect]
     Indication: MULTIPLE MYELOMA
  3. METFORMIN HCL [Concomitant]
     Indication: DIABETES MELLITUS
  4. VELCADE [Suspect]
     Dosage: UNK
     Route: 042
  5. SYNTHROID [Concomitant]
     Indication: HYPOTHYROIDISM
  6. VELCADE [Suspect]
     Indication: MULTIPLE MYELOMA
     Dosage: 2.2 MG, CYCLIC
     Route: 058
     Dates: start: 20120410, end: 20120413

REACTIONS (4)
  - INJECTION SITE ERYTHEMA [None]
  - SKIN ATROPHY [None]
  - INJECTION SITE STREAKING [None]
  - INJECTION SITE DISCOLOURATION [None]
